FAERS Safety Report 24395248 (Version 2)
Quarter: 2024Q4

REPORT INFORMATION
  Report Type: Spontaneous
  Country: FR (occurrence: FR)
  Receive Date: 20241004
  Receipt Date: 20241019
  Transmission Date: 20250115
  Serious: Yes (Other)
  Sender: AUROBINDO
  Company Number: FR-AFSSAPS-LY2024001421

PATIENT
  Age: 31 Year
  Sex: Female
  Weight: 54 kg

DRUGS (6)
  1. FLUCONAZOLE [Suspect]
     Active Substance: FLUCONAZOLE
     Indication: Fungaemia
     Dosage: 800 MILLIGRAM, ONCE A DAY (400 MG/12H)
     Route: 042
     Dates: start: 20240802, end: 20240807
  2. LIDOCAINE [Suspect]
     Active Substance: LIDOCAINE
     Indication: Neuralgia
     Dosage: 54 MILLIGRAM, 1 TOTAL
     Route: 042
     Dates: start: 20240803, end: 20240804
  3. PREGABALIN [Suspect]
     Active Substance: PREGABALIN
     Indication: Neuralgia
     Dosage: 300 MILLIGRAM, ONCE A DAY (100 MG/8H)
     Route: 048
     Dates: start: 20240721, end: 20240806
  4. BACTRIM [Suspect]
     Active Substance: SULFAMETHOXAZOLE\TRIMETHOPRIM
     Indication: Pneumonia
     Dosage: 800 MILLIGRAM, ONCE A DAY (400 MG/12H)
     Route: 042
     Dates: start: 20240804, end: 20240806
  5. CIPROFLOXACIN [Concomitant]
     Active Substance: CIPROFLOXACIN
     Indication: Pneumonia
     Dosage: UNK
     Route: 042
     Dates: start: 20240804, end: 20240806
  6. AVIBACTAM SODIUM\CEFTAZIDIME [Concomitant]
     Active Substance: AVIBACTAM SODIUM\CEFTAZIDIME
     Indication: Pneumonia
     Dosage: UNK
     Route: 042
     Dates: start: 20240804, end: 20240806

REACTIONS (2)
  - Agranulocytosis [Recovered/Resolved]
  - Off label use [Unknown]

NARRATIVE: CASE EVENT DATE: 20240803
